FAERS Safety Report 7777627-2 (Version None)
Quarter: 2011Q3

REPORT INFORMATION
  Report Type: 
  Country: None (occurrence: None)
  Receive Date: 20110926
  Receipt Date: 20110912
  Transmission Date: 20111222
  Serious: Yes (Other)
  Sender: FDA-Public Use
  Company Number: US-ENDO PHARMACEUTICALS INC.-OPER20110227

PATIENT
  Sex: Female

DRUGS (3)
  1. OPANA ER [Suspect]
     Dosage: 20 MG
     Route: 048
  2. ADDERALL 5 [Concomitant]
     Dosage: UNK
  3. METHAMPHETAMINE HYDROCHLORIDE [Suspect]
     Indication: DRUG ABUSE
     Dosage: N/A

REACTIONS (6)
  - DRUG ABUSE [None]
  - PALPITATIONS [None]
  - DIARRHOEA [None]
  - NAUSEA [None]
  - DRUG SCREEN POSITIVE [None]
  - VOMITING [None]
